FAERS Safety Report 12991060 (Version 1)
Quarter: 2016Q4

REPORT INFORMATION
  Report Type: Spontaneous
  Country: US (occurrence: US)
  Receive Date: 20161201
  Receipt Date: 20161201
  Transmission Date: 20170207
  Serious: Yes (Other)
  Sender: FDA-Public Use
  Company Number: US-CLINIGEN GROUP PLC/ CLINIGEN HEALTHCARE LTD-E2B_00001573

PATIENT
  Age: 75 Year
  Sex: Female

DRUGS (7)
  1. DECADRON [Concomitant]
     Active Substance: DEXAMETHASONE
     Dosage: 20 MG 1 DAY(S)
     Route: 042
     Dates: start: 19970707, end: 19970707
  2. BENADRYL [Concomitant]
     Active Substance: DIPHENHYDRAMINE HYDROCHLORIDE
     Dosage: 25 MG 1 DAY(S)
     Route: 042
     Dates: start: 19970707, end: 19970707
  3. TAGAMET [Concomitant]
     Active Substance: CIMETIDINE
     Dosage: 300 MG 1 DAY(S)
     Route: 042
     Dates: start: 19970707, end: 19970707
  4. CARBOPLATIN. [Concomitant]
     Active Substance: CARBOPLATIN
     Dosage: AUC = 7 1 DAY(S)
     Route: 065
     Dates: start: 19970707, end: 19970707
  5. TAXOL [Concomitant]
     Active Substance: PACLITAXEL
     Dosage: 175 MG/M2 1 DAY(S)
     Route: 065
     Dates: start: 19970707, end: 19970707
  6. ETHYOL [Suspect]
     Active Substance: AMIFOSTINE
     Indication: ADVERSE DRUG REACTION
     Dosage: 740 MG/M2 1 DAY(S)
     Route: 042
     Dates: start: 19970707, end: 19970707
  7. ZOFRAN (ONDANSETRON) [Concomitant]
     Dosage: 32 MG 1 DAY(S)
     Route: 042
     Dates: start: 19970707, end: 19970707

REACTIONS (1)
  - Urinary incontinence [Recovered/Resolved]

NARRATIVE: CASE EVENT DATE: 19970707
